FAERS Safety Report 21121443 (Version 1)
Quarter: 2022Q3

REPORT INFORMATION
  Report Type: Spontaneous
  Country: US (occurrence: US)
  Receive Date: 20220722
  Receipt Date: 20220722
  Transmission Date: 20221027
  Serious: No
  Sender: FDA-Public Use
  Company Number: US-PFIZER INC-202200949966

PATIENT
  Age: 11 Year
  Sex: Female
  Weight: 45.36 kg

DRUGS (7)
  1. GENOTROPIN [Suspect]
     Active Substance: SOMATROPIN
     Indication: Prader-Willi syndrome
     Dosage: 1.2 MG, DAILY
     Dates: start: 2019
  2. CLONIDINE [Concomitant]
     Active Substance: CLONIDINE
     Indication: Sleep disorder
     Dosage: 0.3 MG
     Dates: start: 2017
  3. BENZTROPINE MESYLATE [Concomitant]
     Active Substance: BENZTROPINE MESYLATE
     Indication: Behaviour disorder
     Dosage: 0.5 MG
     Dates: start: 2021
  4. RISPERIDONE [Concomitant]
     Active Substance: RISPERIDONE
     Indication: Behaviour disorder
     Dosage: 0.5 MG
     Dates: start: 2021
  5. DOCUSATE SODIUM [Concomitant]
     Active Substance: DOCUSATE SODIUM
     Indication: Bowel movement irregularity
     Dosage: 100 MG, 1X/DAY
     Dates: start: 2021
  6. IRON/VITAMINS NOS [Concomitant]
     Dosage: UNK
  7. BIFIDOBACTERIUM ANIMALIS LACTIS [Concomitant]
     Active Substance: BIFIDOBACTERIUM ANIMALIS LACTIS
     Dosage: 1 DF, DAILY  (1 AT NIGHT)

REACTIONS (3)
  - Drug dose omission by device [Unknown]
  - Device information output issue [Unknown]
  - Device power source issue [Unknown]

NARRATIVE: CASE EVENT DATE: 20220701
